FAERS Safety Report 4957082-8 (Version None)
Quarter: 2006Q1

REPORT INFORMATION
  Report Type: 
  Country: None (occurrence: None)
  Receive Date: 20060323
  Receipt Date: 20060313
  Transmission Date: 20060701
  Serious: Yes (Other)
  Sender: FDA-Public Use
  Company Number: 2006034996

PATIENT
  Age: 50 Year
  Sex: Female

DRUGS (2)
  1. LIPITOR [Suspect]
     Indication: BLOOD CHOLESTEROL INCREASED
     Dosage: 1 IN 1 D
     Dates: start: 20050101
  2. PREVACID [Concomitant]

REACTIONS (9)
  - ARTHRALGIA [None]
  - BONE MARROW DISORDER [None]
  - JOINT INJURY [None]
  - LOCAL SWELLING [None]
  - MUSCLE SPASMS [None]
  - MYALGIA [None]
  - OEDEMA [None]
  - TENDON DISORDER [None]
  - WEIGHT DECREASED [None]
